FAERS Safety Report 5950314-9 (Version None)
Quarter: 2008Q4

REPORT INFORMATION
  Report Type: 
  Country: None (occurrence: None)
  Receive Date: 20081112
  Receipt Date: 20081103
  Transmission Date: 20090506
  Serious: Yes (Hospitalization, Other)
  Sender: FDA-Public Use
  Company Number: PHHY2008DE15391

PATIENT
  Sex: Female

DRUGS (5)
  1. ZOMETA [Suspect]
     Indication: METASTASES TO BONE
     Dosage: 4 MG EVERY 3 TO 4 WEEKS
     Route: 042
     Dates: start: 20051001, end: 20070101
  2. NAVELBINE [Concomitant]
     Indication: BREAST CANCER METASTATIC
     Route: 042
  3. DOCETAXEL [Concomitant]
     Indication: BREAST CANCER
     Dosage: 35 MG/M^2
     Dates: start: 20070101, end: 20070201
  4. VINORELBINE [Concomitant]
     Indication: BREAST CANCER
     Dosage: 30 MG/M^2
     Dates: start: 20080201, end: 20080801
  5. CAPECITABINE [Concomitant]
     Indication: BREAST CANCER
     Dosage: 1250MG/M^2
     Dates: start: 20080801

REACTIONS (8)
  - ACTINOMYCOSIS [None]
  - GINGIVITIS [None]
  - IMPAIRED HEALING [None]
  - JAW OPERATION [None]
  - LOOSE TOOTH [None]
  - OSTEOMYELITIS [None]
  - OSTEONECROSIS [None]
  - TOOTH EXTRACTION [None]
